FAERS Safety Report 15598364 (Version 2)
Quarter: 2019Q1

REPORT INFORMATION
  Report Type: Spontaneous
  Country: FR (occurrence: FR)
  Receive Date: 20181108
  Receipt Date: 20190128
  Transmission Date: 20190417
  Serious: Yes (Other)
  Sender: FDA-Public Use
  Company Number: FR-SA-2018SA303860

PATIENT
  Age: 44 Year
  Sex: Male
  Weight: 56 kg

DRUGS (2)
  1. RIFINAH [Suspect]
     Active Substance: ISONIAZID\RIFAMPIN
     Indication: PULMONARY TUBERCULOSIS
     Dosage: 2 DF
     Route: 048
     Dates: start: 20180723, end: 20181128
  2. RIFATER [Suspect]
     Active Substance: ISONIAZID\PYRAZINAMIDE\RIFAMPIN
     Indication: PULMONARY TUBERCULOSIS
     Route: 048
     Dates: start: 20180521, end: 20180723

REACTIONS (2)
  - Antinuclear antibody positive [Not Recovered/Not Resolved]
  - Arthralgia [Not Recovered/Not Resolved]

NARRATIVE: CASE EVENT DATE: 201809
